FAERS Safety Report 9202145 (Version 1)
Quarter: 2013Q1

REPORT INFORMATION
  Report Type: Spontaneous
  Country: US (occurrence: None)
  Receive Date: 20130326
  Receipt Date: 20130326
  Transmission Date: 20140127
  Serious: Yes (Hospitalization, Other)
  Sender: FDA-Public Use
  Company Number: AUR-APL-2012-03238

PATIENT
  Age: 46 Year
  Sex: Female
  Weight: 90.7 kg

DRUGS (6)
  1. TORSEMIDE [Suspect]
     Indication: BLOOD PRESSURE ABNORMAL
     Route: 048
  2. LYRICA [Suspect]
     Indication: NEUROPATHY PERIPHERAL
     Dosage: (150 MG,3 IN 1 D)
     Route: 048
  3. CALAN - SLOW RELEASE (VERAPAMIL HYDROCHLORIDE) [Concomitant]
  4. MAGNESIUM (MAGNESIUM) [Concomitant]
  5. HYDROCODONE (HYDROCODONE) [Concomitant]
  6. VERAPAMIL [Concomitant]

REACTIONS (16)
  - Accident [None]
  - Liver injury [None]
  - Lung disorder [None]
  - Gallbladder injury [None]
  - Low density lipoprotein increased [None]
  - Nausea [None]
  - Nervousness [None]
  - Nervousness [None]
  - Aphagia [None]
  - Drug dose omission [None]
  - Blood potassium decreased [None]
  - Pneumonia [None]
  - Iatrogenic injury [None]
  - Traumatic liver injury [None]
  - Chronic obstructive pulmonary disease [None]
  - Liver disorder [None]
